FAERS Safety Report 18622745 (Version 1)
Quarter: 2020Q4

REPORT INFORMATION
  Report Type: Spontaneous
  Country: US (occurrence: US)
  Receive Date: 20201216
  Receipt Date: 20201216
  Transmission Date: 20210114
  Serious: No
  Sender: FDA-Public Use
  Company Number: US-TARO-2019TAR00776

PATIENT
  Sex: Male
  Weight: 66.67 kg

DRUGS (3)
  1. DESONIDE LOTION 0.05% [Suspect]
     Active Substance: DESONIDE
     Indication: ROSACEA
     Dosage: ^DIME-SIZED DROP,^ EVERY OTHER DAY
     Route: 061
     Dates: start: 2017, end: 2017
  2. DESONIDE LOTION 0.05% [Suspect]
     Active Substance: DESONIDE
     Indication: ECZEMA
     Dosage: ^DIME-SIZED DROP,^ EVERY OTHER DAY
     Route: 061
     Dates: start: 2019, end: 2019
  3. UNSPECIFIED SUPPLEMENTS [Concomitant]

REACTIONS (5)
  - Burning sensation [Recovered/Resolved]
  - Product substitution issue [Recovered/Resolved]
  - Rash papular [Recovered/Resolved]
  - Dry skin [Recovered/Resolved]
  - Inappropriate schedule of product administration [Recovered/Resolved]

NARRATIVE: CASE EVENT DATE: 2017
